FAERS Safety Report 5199733-1 (Version None)
Quarter: 2007Q1

REPORT INFORMATION
  Report Type: 
  Country: None (occurrence: None)
  Receive Date: 20070103
  Receipt Date: 20070103
  Transmission Date: 20070707
  Serious: Yes (Hospitalization)
  Sender: FDA-Public Use
  Company Number: None

PATIENT
  Age: 55 Year
  Sex: Female
  Weight: 70.3075 kg

DRUGS (2)
  1. PRILOSEC [Suspect]
     Indication: GASTROOESOPHAGEAL REFLUX DISEASE
     Dosage: 20 MG   1 PER DAY  PO
     Route: 048
  2. PRILOSEC [Suspect]
     Indication: HIATUS HERNIA
     Dosage: 20 MG   1 PER DAY  PO
     Route: 048

REACTIONS (1)
  - HIP FRACTURE [None]
